FAERS Safety Report 24365257 (Version 2)
Quarter: 2024Q3

REPORT INFORMATION
  Report Type: Spontaneous
  Country: US (occurrence: US)
  Receive Date: 20240926
  Receipt Date: 20240926
  Transmission Date: 20241016
  Serious: Yes (Other)
  Sender: ROCHE
  Company Number: US-ROCHE-10000084893

PATIENT
  Age: 90 Year
  Sex: Male
  Weight: 71.7 kg

DRUGS (3)
  1. ESBRIET [Suspect]
     Active Substance: PIRFENIDONE
     Indication: Pulmonary arterial hypertension
     Route: 048
     Dates: start: 2024
  2. TYVASO [Suspect]
     Active Substance: TREPROSTINIL
     Indication: Pulmonary arterial hypertension
     Route: 065
     Dates: start: 202406, end: 20240621
  3. MICARDIS [Suspect]
     Active Substance: TELMISARTAN
     Indication: Pulmonary arterial hypertension
     Route: 065
     Dates: end: 2024

REACTIONS (5)
  - Seizure [Unknown]
  - Dizziness [Unknown]
  - Hypotension [Recovering/Resolving]
  - Dehydration [Unknown]
  - Headache [Unknown]

NARRATIVE: CASE EVENT DATE: 20240601
